FAERS Safety Report 5260545-1 (Version None)
Quarter: 2007Q1

REPORT INFORMATION
  Report Type: 
  Country: None (occurrence: None)
  Receive Date: 20070309
  Receipt Date: 20061025
  Transmission Date: 20070707
  Serious: No
  Sender: FDA-Public Use
  Company Number: US-GLAXOSMITHKLINE-A0624713A

PATIENT
  Sex: Male

DRUGS (1)
  1. NICORETTE [Suspect]
     Indication: DRUG USE FOR UNKNOWN INDICATION
     Dates: start: 20061019

REACTIONS (5)
  - BACK PAIN [None]
  - DRY THROAT [None]
  - DYSPNOEA [None]
  - HEADACHE [None]
  - PHARYNGEAL OEDEMA [None]
